FAERS Safety Report 8987796 (Version 3)
Quarter: 2013Q1

REPORT INFORMATION
  Report Type: Spontaneous
  Country: US (occurrence: US)
  Receive Date: 20121227
  Receipt Date: 20130130
  Transmission Date: 20140127
  Serious: Yes (Other)
  Sender: FDA-Public Use
  Company Number: US-GLAXOSMITHKLINE-A1006216A

PATIENT
  Age: 25 Year
  Sex: Female
  Weight: 57.7 kg

DRUGS (7)
  1. BENLYSTA [Suspect]
     Indication: SYSTEMIC LUPUS ERYTHEMATOSUS
     Dosage: 556MG EVERY TWO WEEKS
     Route: 042
     Dates: start: 20121017, end: 20121114
  2. TYLENOL [Concomitant]
  3. BENADRYL [Concomitant]
  4. PLAQUENIL [Concomitant]
  5. OSCAL [Concomitant]
  6. MEDROL [Concomitant]
  7. IMURAN [Concomitant]

REACTIONS (6)
  - Angioedema [Recovering/Resolving]
  - Erythema [Unknown]
  - Eye swelling [Unknown]
  - Pruritus [Unknown]
  - Swelling face [Unknown]
  - Rash [Unknown]
